FAERS Safety Report 9797955 (Version 2)
Quarter: 2014Q1

REPORT INFORMATION
  Report Type: Spontaneous
  Country: US (occurrence: US)
  Receive Date: 20140106
  Receipt Date: 20140305
  Transmission Date: 20141002
  Serious: Yes (Other)
  Sender: FDA-Public Use
  Company Number: PHEH2014US000469

PATIENT
  Sex: Male

DRUGS (5)
  1. LEVODOPA-CARBIDOPA [Concomitant]
     Dosage: UNK
  2. CRESTOR [Concomitant]
     Dosage: UNK
  3. ESCITALOPRAM [Concomitant]
     Dosage: UNK
  4. BUSPIRONE [Concomitant]
     Dosage: UNK
  5. RITALIN [Suspect]
     Indication: ATTENTION DEFICIT/HYPERACTIVITY DISORDER
     Dosage: UNK

REACTIONS (3)
  - Parkinson^s disease [Unknown]
  - Cardiovascular disorder [Unknown]
  - Sensory loss [Unknown]
